FAERS Safety Report 10728676 (Version 1)
Quarter: 2015Q1

REPORT INFORMATION
  Report Type: Spontaneous
  Country: GB (occurrence: GB)
  Receive Date: 20150122
  Receipt Date: 20150122
  Transmission Date: 20150721
  Serious: Yes (Other)
  Sender: FDA-Public Use
  Company Number: GB-ACCORD-028169

PATIENT
  Age: 76 Year
  Sex: Female

DRUGS (4)
  1. BENDROFLUMETHIAZIDE [Concomitant]
     Active Substance: BENDROFLUMETHIAZIDE
  2. TRIMETHOPRIM/TRIMETHOPRIM LACTATE/TRIMETHOPRIM SULFATE [Concomitant]
     Indication: PROPHYLAXIS URINARY TRACT INFECTION
  3. MONTELUKAST/MONTELUKAST SODIUM [Concomitant]
  4. SIMVASTATIN. [Suspect]
     Active Substance: SIMVASTATIN
     Indication: CEREBROVASCULAR ACCIDENT
     Dosage: AT NIGHT. STARTED JUST OVER 1 YEAR AGO.

REACTIONS (2)
  - Restless legs syndrome [Not Recovered/Not Resolved]
  - Myalgia [Not Recovered/Not Resolved]
